FAERS Safety Report 10136257 (Version 1)
Quarter: 2014Q2

REPORT INFORMATION
  Report Type: Spontaneous
  Country: FR (occurrence: FR)
  Receive Date: 20140429
  Receipt Date: 20140429
  Transmission Date: 20141212
  Serious: Yes (Death)
  Sender: FDA-Public Use
  Company Number: FR-ROCHE-1390297

PATIENT
  Age: 74 Year
  Sex: Male

DRUGS (5)
  1. XELODA [Suspect]
     Indication: ADENOCARCINOMA GASTRIC
     Route: 048
     Dates: start: 20140130, end: 20140322
  2. EPIRUBICIN [Suspect]
     Indication: ADENOCARCINOMA GASTRIC
     Route: 042
     Dates: start: 20140130, end: 20140314
  3. OXALIPLATIN HOSPIRA [Suspect]
     Indication: ADENOCARCINOMA GASTRIC
     Route: 042
     Dates: start: 20140130, end: 20140314
  4. METHYLPREDNISOLONE [Concomitant]
     Indication: ADENOCARCINOMA GASTRIC
     Route: 042
     Dates: start: 20140314, end: 20140314
  5. CRESTOR [Concomitant]
     Dosage: EVENING DOSE
     Route: 065

REACTIONS (3)
  - Diarrhoea [Fatal]
  - Dehydration [Fatal]
  - Renal failure acute [Fatal]
